FAERS Safety Report 7093370-X (Version None)
Quarter: 2010Q4

REPORT INFORMATION
  Report Type: 
  Country: None (occurrence: None)
  Receive Date: 20101102
  Receipt Date: 20101029
  Transmission Date: 20110411
  Serious: Yes (Other)
  Sender: FDA-Public Use
  Company Number: 20108873

PATIENT
  Age: 26 Year
  Sex: Female

DRUGS (1)
  1. LIORESAL [Suspect]
     Indication: MUSCLE SPASTICITY
     Dosage: 400-200 MCG, DAILY, INTRATHECAL
     Route: 037

REACTIONS (6)
  - ADHESION [None]
  - COMPLICATION OF DEVICE REMOVAL [None]
  - DEVICE BREAKAGE [None]
  - DEVICE DISLOCATION [None]
  - MASS [None]
  - MEDICAL DEVICE COMPLICATION [None]
